FAERS Safety Report 8802987 (Version 1)
Quarter: 2012Q4

REPORT INFORMATION
  Report Type: Report from Study
  Country: US (occurrence: US)
  Receive Date: 20120924
  Receipt Date: 20120924
  Transmission Date: 20130627
  Serious: Yes (Other)
  Sender: FDA-Public Use
  Company Number: US-BRISTOL-MYERS SQUIBB COMPANY-16960338

PATIENT
  Age: 62 Year
  Sex: Male

DRUGS (2)
  1. SUSTIVA [Suspect]
     Indication: HIV INFECTION
  2. EPZICOM [Suspect]
     Indication: HIV INFECTION

REACTIONS (2)
  - Dyslipidaemia [Unknown]
  - Coronary artery disease [Unknown]
